FAERS Safety Report 11654376 (Version 1)
Quarter: 2015Q4

REPORT INFORMATION
  Report Type: Spontaneous
  Country: CN (occurrence: CN)
  Receive Date: 20151023
  Receipt Date: 20151023
  Transmission Date: 20160304
  Serious: Yes (Hospitalization)
  Sender: FDA-Public Use
  Company Number: CN-ROCHE-1648432

PATIENT
  Age: 80 Year
  Sex: Female
  Weight: 83 kg

DRUGS (1)
  1. ROCEPHIN [Suspect]
     Active Substance: CEFTRIAXONE SODIUM
     Indication: SKIN TEST
     Route: 058
     Dates: start: 20150521, end: 20150521

REACTIONS (3)
  - Cyanosis [Recovering/Resolving]
  - Atrial fibrillation [Recovering/Resolving]
  - Tremor [Recovering/Resolving]

NARRATIVE: CASE EVENT DATE: 20150521
